FAERS Safety Report 7635275-9 (Version None)
Quarter: 2011Q3

REPORT INFORMATION
  Report Type: 
  Country: None (occurrence: None)
  Receive Date: 20110726
  Receipt Date: 20110721
  Transmission Date: 20111222
  Serious: Yes (Death)
  Sender: FDA-Public Use
  Company Number: JP-BAYER-2011-006707

PATIENT
  Age: 88 Year
  Sex: Female

DRUGS (2)
  1. SORAFENIB (RAF KINASE INHIBITOR) [Suspect]
     Dosage: 400 MG, UNK
     Route: 048
     Dates: start: 20101221, end: 20101231
  2. SORAFENIB (RAF KINASE INHIBITOR) [Suspect]
     Indication: HEPATIC NEOPLASM MALIGNANT
     Dosage: 200 MG, QD
     Route: 048
     Dates: start: 20101221, end: 20110103

REACTIONS (3)
  - HEPATIC FAILURE [None]
  - LIVER DISORDER [None]
  - HEPATIC NEOPLASM MALIGNANT [None]
